FAERS Safety Report 13545070 (Version 2)
Quarter: 2017Q3

REPORT INFORMATION
  Report Type: Spontaneous
  Country: IL (occurrence: IL)
  Receive Date: 20170515
  Receipt Date: 20170821
  Transmission Date: 20171127
  Serious: Yes (Hospitalization)
  Sender: FDA-Public Use
  Company Number: IL-ORPHAN EUROPE-2020741

PATIENT
  Age: 16 Year
  Sex: Male

DRUGS (5)
  1. OMEPRADEX [Concomitant]
     Active Substance: OMEPRAZOLE
  2. CARBAGLU [Suspect]
     Active Substance: CARGLUMIC ACID
     Indication: N-ACETYLGLUTAMATE SYNTHASE DEFICIENCY
  3. CARBAGLU [Suspect]
     Active Substance: CARGLUMIC ACID
  4. TOPAMAX [Concomitant]
     Active Substance: TOPIRAMATE
  5. PHENOBARBITAL. [Concomitant]
     Active Substance: PHENOBARBITAL

REACTIONS (1)
  - Seizure [Recovering/Resolving]

NARRATIVE: CASE EVENT DATE: 20170109
